FAERS Safety Report 10953216 (Version 2)
Quarter: 2015Q2

REPORT INFORMATION
  Report Type: Spontaneous
  Country: US (occurrence: US)
  Receive Date: 20150325
  Receipt Date: 20150409
  Transmission Date: 20150821
  Serious: Yes (Congenital Anomaly, Other)
  Sender: FDA-Public Use
  Company Number: US-ELI_LILLY_AND_COMPANY-US201503006359

PATIENT

DRUGS (7)
  1. NOVOLOG [Concomitant]
     Active Substance: INSULIN ASPART
     Route: 064
  2. AMBIEN [Concomitant]
     Active Substance: ZOLPIDEM TARTRATE
     Route: 064
  3. PRENATAL                           /06041401/ [Concomitant]
     Route: 064
  4. PROZAC [Suspect]
     Active Substance: FLUOXETINE HYDROCHLORIDE
     Indication: PRODUCT USED FOR UNKNOWN INDICATION
     Dosage: 10 MG, UNKNOWN
     Route: 064
     Dates: start: 20090921
  5. DIGOXIN. [Concomitant]
     Active Substance: DIGOXIN
     Route: 064
  6. PROZAC [Suspect]
     Active Substance: FLUOXETINE HYDROCHLORIDE
     Dosage: 20 MG, UNKNOWN
     Route: 064
  7. CLINDAMYCIN [Concomitant]
     Active Substance: CLINDAMYCIN\CLINDAMYCIN PHOSPHATE
     Route: 064

REACTIONS (25)
  - Ventricular hypertrophy [Unknown]
  - Pulmonary oedema [Unknown]
  - Ventricular septal defect acquired [Recovered/Resolved]
  - Gross motor delay [Unknown]
  - Ventricular septal defect [Recovered/Resolved with Sequelae]
  - Supraventricular tachycardia [Recovered/Resolved]
  - Pleural effusion [Unknown]
  - Mitral valve incompetence [Unknown]
  - Large for dates baby [Unknown]
  - Atrial septal defect [Recovered/Resolved]
  - Polydactyly [Recovered/Resolved]
  - Junctional ectopic tachycardia [Recovered/Resolved]
  - Atelectasis [Unknown]
  - Pulmonary hypertension [Unknown]
  - Foetal exposure during pregnancy [Recovered/Resolved]
  - Cardiac failure congestive [Unknown]
  - Arrhythmia supraventricular [Unknown]
  - Bundle branch block right [Unknown]
  - Weight decreased [Unknown]
  - Pericardial effusion [Unknown]
  - Cardiac aneurysm [Recovered/Resolved]
  - Failure to thrive [Recovered/Resolved]
  - Tricuspid valve incompetence [Unknown]
  - Aortic valve incompetence [Unknown]
  - Pulmonary artery dilatation [Unknown]
